FAERS Safety Report 14117143 (Version 1)
Quarter: 2017Q4

REPORT INFORMATION
  Report Type: Spontaneous
  Country: US (occurrence: US)
  Receive Date: 20171023
  Receipt Date: 20171023
  Transmission Date: 20180321
  Serious: No
  Sender: FDA-Public Use
  Company Number: US-ABBVIE-16P-163-1713818-00

PATIENT
  Age: 31 Year
  Sex: Female

DRUGS (1)
  1. LUPRON [Suspect]
     Active Substance: LEUPROLIDE ACETATE
     Indication: PRODUCT USED FOR UNKNOWN INDICATION
     Dosage: 2 INJECTIONS
     Route: 065

REACTIONS (6)
  - Ovarian cyst [Unknown]
  - Uterine leiomyoma [Unknown]
  - Abdominal pain [Not Recovered/Not Resolved]
  - Endometriosis [Unknown]
  - Drug ineffective [Unknown]
  - Procedural pain [Recovered/Resolved]
